FAERS Safety Report 16354210 (Version 2)
Quarter: 2020Q2

REPORT INFORMATION
  Report Type: Report from Study
  Country: JP (occurrence: JP)
  Receive Date: 20190524
  Receipt Date: 20200616
  Transmission Date: 20200713
  Serious: Yes (Death)
  Sender: FDA-Public Use
  Company Number: JP-PFIZER INC-2019223792

PATIENT

DRUGS (3)
  1. CISPLATIN. [Suspect]
     Active Substance: CISPLATIN
     Indication: GASTRIC CANCER
     Dosage: 60 MG/M2, CYCLIC (ON DAY 1, REPEATED EVERY 4 WEEKS FOR SIX CYCLES)
     Route: 042
  2. TS-1 [Suspect]
     Active Substance: GIMERACIL\OTERACIL\TEGAFUR
     Indication: GASTRIC CANCER
     Dosage: CALCULATED ACCORDING TO BSA (40-60 MG, TWICE A DAY), FOR 2 WEEKS, REPEATED EVERY 4 WEEKS FOR SIX CYC
     Route: 048
  3. DOCETAXEL. [Suspect]
     Active Substance: DOCETAXEL
     Indication: GASTRIC CANCER
     Dosage: 40 MG/M2, CYCLIC (ON DAY 1, REPEATED EVERY 4 WEEKS FOR SIX CYCLES)
     Route: 042

REACTIONS (1)
  - Embolism [Fatal]
